FAERS Safety Report 14226207 (Version 1)
Quarter: 2017Q4

REPORT INFORMATION
  Report Type: Report from Study
  Country: CO (occurrence: CO)
  Receive Date: 20171127
  Receipt Date: 20171127
  Transmission Date: 20180321
  Serious: Yes (Hospitalization, Other)
  Sender: FDA-Public Use
  Company Number: CO-BRISTOL-MYERS SQUIBB COMPANY-BMS-2017-076979

PATIENT
  Age: 60 Year
  Sex: Male

DRUGS (2)
  1. NIVOLUMAB [Suspect]
     Active Substance: NIVOLUMAB
     Indication: PRODUCT USED FOR UNKNOWN INDICATION
     Dosage: 100 MG, Q3WK
     Route: 042
  2. NIVOLUMAB [Suspect]
     Active Substance: NIVOLUMAB
     Indication: MALIGNANT MELANOMA
     Dosage: 200 MG, Q2WK
     Route: 042
     Dates: start: 20170714, end: 20171118

REACTIONS (5)
  - Prescribed underdose [Unknown]
  - Balance disorder [Recovering/Resolving]
  - Confusional state [Recovering/Resolving]
  - Off label use [Unknown]
  - Pneumonitis [Unknown]

NARRATIVE: CASE EVENT DATE: 20170822
